FAERS Safety Report 5827282-3 (Version None)
Quarter: 2008Q3

REPORT INFORMATION
  Report Type: 
  Country: None (occurrence: None)
  Receive Date: 20080730
  Receipt Date: 20080723
  Transmission Date: 20090109
  Serious: Yes (Hospitalization)
  Sender: FDA-Public Use
  Company Number: US-ROCHE-577086

PATIENT
  Sex: Female
  Weight: 44.5 kg

DRUGS (22)
  1. NAPROXEN [Suspect]
     Indication: DRUG USE FOR UNKNOWN INDICATION
     Route: 065
  2. ENBREL [Suspect]
     Indication: RHEUMATOID ARTHRITIS
     Route: 058
     Dates: start: 20050209
  3. ESTROGENS CONJUGATED [Suspect]
     Indication: DRUG USE FOR UNKNOWN INDICATION
     Route: 065
  4. HYDROXYCHLOROQUINE SULFATE [Concomitant]
  5. IBANDRONATE [Concomitant]
     Route: 042
     Dates: start: 20061103
  6. MISOPROSTOL [Concomitant]
  7. BUDESONIDE [Concomitant]
  8. OLMESARTAN MEDOXOMIL [Concomitant]
  9. LEVOTHYROXINE SODIUM [Concomitant]
  10. TRAZODONE HCL [Concomitant]
  11. SERTRALINE HYDROCHLORIDE [Concomitant]
  12. FLUTICASONE/SALMETEROL [Concomitant]
  13. TRIAMCINOLONE [Concomitant]
     Route: 048
  14. BUDESONIDE [Concomitant]
     Route: 055
  15. ALBUTEROL [Concomitant]
     Dosage: AS NECESSARY, REPORTED AS 'ALBUTEROL SULFATE'
     Route: 055
  16. FLUTICASONE PROPIONATE [Concomitant]
  17. BUDESONIDE/FORMOTEROL [Concomitant]
     Dosage: REPORTED AS 'BUDESONIDE/FORMOTEROL FUMARATE'
  18. FEXOFENADINE HYDROCHLORIDE [Concomitant]
  19. RABEPRAZOLE SODIUM [Concomitant]
  20. CLOPIDOGREL BISULFATE [Concomitant]
  21. FOLIC ACID [Concomitant]
  22. CALCIUM/VITAMIN D [Concomitant]
     Dosage: REPORTED AS 'CALCIUM WITH VITAMIN D'

REACTIONS (8)
  - BRONCHITIS [None]
  - ECCHYMOSIS [None]
  - ISCHAEMIC STROKE [None]
  - JOINT SWELLING [None]
  - NECK PAIN [None]
  - PAIN IN EXTREMITY [None]
  - PELVIC FRACTURE [None]
  - WEIGHT DECREASED [None]
